FAERS Safety Report 9695745 (Version 2)
Quarter: 2014Q1

REPORT INFORMATION
  Report Type: Spontaneous
  Country: GB (occurrence: GB)
  Receive Date: 20131119
  Receipt Date: 20140205
  Transmission Date: 20141002
  Serious: Yes (Hospitalization)
  Sender: FDA-Public Use
  Company Number: GB-009507513-1311GBR006658

PATIENT
  Age: 73 Year
  Sex: Male
  Weight: 86 kg

DRUGS (12)
  1. DEXAMETHASONE [Suspect]
     Indication: PLASMA CELL MYELOMA
     Dosage: UNK
     Route: 048
     Dates: start: 20090211
  2. DEXAMETHASONE [Suspect]
     Dosage: 40 MG, QD
     Route: 048
     Dates: start: 20120912
  3. REVLIMID [Suspect]
     Indication: PLASMA CELL MYELOMA
     Dosage: UNK
     Route: 048
     Dates: start: 20090211
  4. REVLIMID [Suspect]
     Dosage: 10 MG, QD
     Route: 048
     Dates: start: 20120912
  5. ASPIRIN [Concomitant]
     Dosage: UNK
     Dates: start: 20120913
  6. CACIT VITAMINE D3 [Concomitant]
     Dosage: UNK
     Dates: start: 20090211
  7. EPREX [Concomitant]
     Dosage: UNK
     Route: 058
     Dates: start: 20130814
  8. MORPHINE SULFATE [Concomitant]
  9. OMEPRAZOLE [Concomitant]
     Dosage: UNK
     Route: 048
     Dates: start: 1985
  10. ACETAMINOPHEN [Concomitant]
  11. TRAMADOL HYDROCHLORIDE [Concomitant]
     Dosage: UNK
     Dates: start: 20130130
  12. ZOMETA [Concomitant]
     Dosage: UNK
     Dates: start: 20090211

REACTIONS (2)
  - Spinal cord compression [Unknown]
  - Cervical spinal stenosis [Unknown]
